FAERS Safety Report 5517818-4 (Version None)
Quarter: 2007Q4

REPORT INFORMATION
  Report Type: 
  Country: None (occurrence: None)
  Receive Date: 20071113
  Receipt Date: 20071025
  Transmission Date: 20080405
  Serious: Yes (Other)
  Sender: FDA-Public Use
  Company Number: 2007SP022092

PATIENT
  Sex: Female

DRUGS (2)
  1. CLARITIN [Suspect]
     Dosage: PO
     Route: 048
  2. BENADRYL [Suspect]

REACTIONS (1)
  - JAUNDICE [None]
